FAERS Safety Report 18601962 (Version 2)
Quarter: 2021Q1

REPORT INFORMATION
  Report Type: Spontaneous
  Country: US (occurrence: US)
  Receive Date: 20201210
  Receipt Date: 20210115
  Transmission Date: 20210419
  Serious: Yes (Other)
  Sender: FDA-Public Use
  Company Number: US-PFIZER INC-2020485693

PATIENT
  Age: 80 Year
  Sex: Female
  Weight: 79.83 kg

DRUGS (2)
  1. METFORMIN [Concomitant]
     Active Substance: METFORMIN HYDROCHLORIDE
     Indication: DIABETES MELLITUS
     Dosage: UNK
  2. XELJANZ XR [Suspect]
     Active Substance: TOFACITINIB CITRATE
     Indication: ARTHRITIS
     Dosage: 11 MG, 1X/DAY (11 MG, ONCE IN THE MORNING)
     Dates: start: 202011

REACTIONS (3)
  - Meniscus injury [Unknown]
  - Ligament sprain [Unknown]
  - Gait disturbance [Unknown]
